FAERS Safety Report 14804434 (Version 2)
Quarter: 2018Q2

REPORT INFORMATION
  Report Type: Spontaneous
  Country: TR (occurrence: TR)
  Receive Date: 20180425
  Receipt Date: 20180507
  Transmission Date: 20180711
  Serious: Yes (Life-Threatening, Hospitalization)
  Sender: FDA-Public Use
  Company Number: TR-BAYER-2018-074573

PATIENT
  Age: 49 Year
  Sex: Female

DRUGS (8)
  1. ROCURONIUM [Concomitant]
     Active Substance: ROCURONIUM BROMIDE
     Dosage: 0.5 MG/KG, UNK
  2. REMIFENTANIL [Concomitant]
     Active Substance: REMIFENTANIL
  3. ACETYLSALICYLIC ACID({=100 MG) [Suspect]
     Active Substance: ASPIRIN
     Indication: THROMBOSIS PROPHYLAXIS
     Dosage: UNK
  4. CLOPIDOGREL [Suspect]
     Active Substance: CLOPIDOGREL BISULFATE
     Indication: THROMBOSIS PROPHYLAXIS
     Dosage: 300 MG, UNK
  5. SEVOFLURANE. [Concomitant]
     Active Substance: SEVOFLURANE
     Dosage: 2 %, UNK
  6. FENTANYL. [Concomitant]
     Active Substance: FENTANYL
     Dosage: 1 MCG/L, UNK
  7. PROPOFOL. [Concomitant]
     Active Substance: PROPOFOL
     Dosage: 2 MG/KG, UNK
  8. MIDAZOLAM [Concomitant]
     Active Substance: MIDAZOLAM HYDROCHLORIDE
     Dosage: 3 MG, UNK

REACTIONS (5)
  - Labelled drug-drug interaction medication error [Recovered/Resolved]
  - Artery dissection [Recovered/Resolved]
  - Haematoma [Recovered/Resolved]
  - Laryngeal obstruction [Recovered/Resolved]
  - Contraindicated product administered [Recovered/Resolved]
